FAERS Safety Report 8816625 (Version 1)
Quarter: 2012Q4

REPORT INFORMATION
  Report Type: Spontaneous
  Country: US (occurrence: None)
  Receive Date: 20121001
  Receipt Date: 20121001
  Transmission Date: 20130627
  Serious: Yes (Hospitalization, Disabling)
  Sender: FDA-Public Use
  Company Number: None

PATIENT
  Age: 31 Year
  Sex: Female
  Weight: 61.24 kg

DRUGS (1)
  1. MIRENA IUD [Suspect]
     Indication: CONTRACEPTION
     Dates: start: 20081211, end: 20110601

REACTIONS (6)
  - Uterine perforation [None]
  - Medical device complication [None]
  - Device dislocation [None]
  - Pregnancy with contraceptive device [None]
  - Scar [None]
  - Post procedural complication [None]
